FAERS Safety Report 4538112-4 (Version None)
Quarter: 2004Q4

REPORT INFORMATION
  Report Type: 
  Country: None (occurrence: None)
  Receive Date: 20041221
  Receipt Date: 20041209
  Transmission Date: 20050328
  Serious: Yes (Other)
  Sender: FDA-Public Use
  Company Number: 041-0981-M0000023

PATIENT
  Age: 61 Year
  Sex: Male
  Weight: 77.5 kg

DRUGS (4)
  1. ATORVASTATIN (ATORVASTATIN) [Suspect]
     Indication: HYPERCHOLESTEROLAEMIA
     Dosage: SEE IMAGE, ORAL
     Route: 048
     Dates: start: 19990730, end: 19990928
  2. ATORVASTATIN (ATORVASTATIN) [Suspect]
     Indication: HYPERCHOLESTEROLAEMIA
     Dosage: SEE IMAGE, ORAL
     Route: 048
     Dates: start: 19990929, end: 20000103
  3. ASPIRIN [Concomitant]
  4. ATENOLOL [Concomitant]

REACTIONS (19)
  - ANGINA PECTORIS [None]
  - AUTOIMMUNE DISORDER [None]
  - BLOOD PRESSURE SYSTOLIC INCREASED [None]
  - CAROTID BRUIT [None]
  - DIZZINESS [None]
  - ELECTROCARDIOGRAM ST SEGMENT DEPRESSION [None]
  - GENERAL PHYSICAL HEALTH DETERIORATION [None]
  - INFLUENZA [None]
  - INTERSTITIAL LUNG DISEASE [None]
  - LIVER DISORDER [None]
  - PLEURAL ADHESION [None]
  - PLEURAL FIBROSIS [None]
  - PNEUMONIA [None]
  - PRODUCTIVE COUGH [None]
  - REFUSAL OF TREATMENT BY PATIENT [None]
  - RENAL CYST [None]
  - SARCOIDOSIS [None]
  - SYNCOPE [None]
  - WEIGHT DECREASED [None]
